FAERS Safety Report 7617249-7 (Version None)
Quarter: 2011Q3

REPORT INFORMATION
  Report Type: 
  Country: None (occurrence: None)
  Receive Date: 20110718
  Receipt Date: 20110708
  Transmission Date: 20111222
  Serious: Yes (Hospitalization)
  Sender: FDA-Public Use
  Company Number: US-JNJFOC-20110703732

PATIENT
  Age: 95 Year
  Sex: Female

DRUGS (15)
  1. DEXTROSE NORMAL SALINE [Concomitant]
     Route: 042
     Dates: start: 20110708
  2. CEFTRIAXONE [Concomitant]
     Route: 065
     Dates: start: 20110702
  3. DOPAMINE HCL [Concomitant]
     Route: 042
     Dates: start: 20110704
  4. NITROGLYCERIN [Concomitant]
     Route: 042
     Dates: start: 20110704
  5. MORPHINE [Concomitant]
     Route: 042
     Dates: start: 20110706
  6. DEXTROSE 50% [Concomitant]
     Indication: HYPOGLYCAEMIA
     Route: 042
     Dates: start: 20110701
  7. RISPERDAL CONSTA [Suspect]
     Indication: PRODUCT USED FOR UNKNOWN INDICATION
     Route: 042
     Dates: start: 20110707, end: 20110707
  8. ARTIFICIAL TEARS NOS [Concomitant]
     Route: 065
  9. LEVOTHYROXINE SODIUM [Concomitant]
     Route: 042
     Dates: start: 20110706
  10. ALBUTEROL SULFATE AUTOHALER [Concomitant]
     Route: 065
     Dates: start: 20110701
  11. IPRATROPIUM BROMIDE [Concomitant]
     Route: 065
     Dates: start: 20110701
  12. ANOPYRIN [Concomitant]
     Route: 058
     Dates: start: 20110701
  13. LORAZEPAM [Concomitant]
     Route: 042
     Dates: start: 20110707
  14. METOPROLOL TARTRATE [Concomitant]
     Route: 042
     Dates: start: 20110706
  15. INSULIN [Concomitant]
     Route: 058
     Dates: start: 20110701

REACTIONS (2)
  - INCORRECT DOSE ADMINISTERED [None]
  - INCORRECT ROUTE OF DRUG ADMINISTRATION [None]
